FAERS Safety Report 10416337 (Version 1)
Quarter: 2014Q3

REPORT INFORMATION
  Report Type: Spontaneous
  Country: US (occurrence: None)
  Receive Date: 20140826
  Receipt Date: 20140826
  Transmission Date: 20150326
  Serious: No
  Sender: FDA-Public Use
  Company Number: US-LHC-2014074

PATIENT
  Sex: Male

DRUGS (2)
  1. NITROUS OXIDE. [Suspect]
     Active Substance: NITROUS OXIDE
     Indication: DENTAL CARE
     Route: 055
  2. OXYGEN. [Suspect]
     Active Substance: OXYGEN
     Indication: DENTAL CARE
     Route: 055

REACTIONS (1)
  - Vomiting [None]

NARRATIVE: CASE EVENT DATE: 20140803
